FAERS Safety Report 6839013-9 (Version None)
Quarter: 2010Q3

REPORT INFORMATION
  Report Type: 
  Country: None (occurrence: None)
  Receive Date: 20100713
  Receipt Date: 20091123
  Transmission Date: 20110219
  Serious: No
  Sender: FDA-Public Use
  Company Number: US-PFIZER INC-2007040356

PATIENT
  Sex: Female
  Weight: 58.51 kg

DRUGS (5)
  1. CHANTIX [Suspect]
     Indication: SMOKING CESSATION THERAPY
     Dosage: 1 MG, 2X/DAY
     Dates: start: 20070501
  2. CHANTIX [Suspect]
     Indication: NICOTINE DEPENDENCE
     Dosage: UNK
     Route: 048
     Dates: start: 20091001
  3. DIFLUNISAL [Concomitant]
     Indication: ARTHRITIS
  4. OPTIVITE FOR WOMEN [Concomitant]
     Indication: MACULAR DEGENERATION
  5. AVELOX [Concomitant]
     Indication: BRONCHITIS

REACTIONS (2)
  - DRUG INEFFECTIVE [None]
  - MIDDLE INSOMNIA [None]
